FAERS Safety Report 20673356 (Version 1)
Quarter: 2022Q2

REPORT INFORMATION
  Report Type: Spontaneous
  Country: CA (occurrence: CA)
  Receive Date: 20220405
  Receipt Date: 20220405
  Transmission Date: 20220720
  Serious: Yes (Life-Threatening, Hospitalization)
  Sender: FDA-Public Use
  Company Number: None

PATIENT
  Age: 51 Year
  Sex: Male
  Weight: 82 kg

DRUGS (7)
  1. FLUOROURACIL [Suspect]
     Active Substance: FLUOROURACIL
     Indication: Adenocarcinoma pancreas
     Route: 042
  2. CAMPTOSAR [Concomitant]
     Active Substance: IRINOTECAN HYDROCHLORIDE
     Dosage: SOLUTION INTRAVENOUS
  3. CRESTOR [Concomitant]
     Active Substance: ROSUVASTATIN CALCIUM
  4. ELOXATIN [Concomitant]
     Active Substance: OXALIPLATIN
  5. LEUCOVORIN [Concomitant]
     Active Substance: LEUCOVORIN
     Dosage: LIQUID INTRAVENOUS
  6. LORAZEPAM [Concomitant]
     Active Substance: LORAZEPAM
  7. NYSTATIN [Concomitant]
     Active Substance: NYSTATIN

REACTIONS (1)
  - Klebsiella sepsis [Recovering/Resolving]
